FAERS Safety Report 5193795-3 (Version None)
Quarter: 2006Q4

REPORT INFORMATION
  Report Type: 
  Country: None (occurrence: None)
  Receive Date: 20061228
  Receipt Date: 20061218
  Transmission Date: 20070319
  Serious: Yes (Hospitalization)
  Sender: FDA-Public Use
  Company Number: FR-ELI_LILLY_AND_COMPANY-FR200612002891

PATIENT
  Age: 66 Year
  Sex: Male
  Weight: 79 kg

DRUGS (12)
  1. PROZAC [Suspect]
     Dosage: 40 MG, DAILY (1/D)
     Route: 048
     Dates: start: 20051215, end: 20060502
  2. PERINDOPRIL ERBUMINE [Concomitant]
     Indication: ISCHAEMIC CARDIOMYOPATHY
     Dosage: 4 MG, DAILY (1/D)
     Route: 048
     Dates: start: 20051015, end: 20060502
  3. SECTRAL [Concomitant]
     Indication: ISCHAEMIC CARDIOMYOPATHY
     Route: 048
     Dates: start: 20051001
  4. CORDARONE                               /NET/ [Concomitant]
     Route: 048
     Dates: start: 20051001
  5. PLAVIX                                  /UNK/ [Concomitant]
     Indication: ISCHAEMIC CARDIOMYOPATHY
     Route: 048
     Dates: start: 20051001
  6. NOCTRAN 10 [Concomitant]
     Dosage: 10 MG, DAILY (1/D)
     Route: 048
     Dates: start: 20060103, end: 20060502
  7. ISOCARD [Concomitant]
     Indication: HYPERTENSION
     Route: 060
     Dates: start: 20051228, end: 20060502
  8. LOXEN [Concomitant]
     Indication: HYPERTENSION
     Dosage: 20 MG, DAILY (1/D)
     Route: 048
     Dates: start: 20051228, end: 20060504
  9. MEDIATOR [Concomitant]
     Indication: DIABETES MELLITUS NON-INSULIN-DEPENDENT
     Route: 048
     Dates: start: 20050101
  10. ARESTAL [Concomitant]
     Indication: DIARRHOEA
     Route: 065
     Dates: start: 20060207
  11. ALLOPURINOL TAB [Concomitant]
     Indication: HYPERURICAEMIA
     Route: 065
     Dates: start: 20060207
  12. DEPAKOTE [Concomitant]
     Route: 048
     Dates: start: 20040101

REACTIONS (10)
  - BLOOD CREATININE INCREASED [None]
  - BUNDLE BRANCH BLOCK RIGHT [None]
  - CARDIOMYOPATHY [None]
  - DISSEMINATED INTRAVASCULAR COAGULATION [None]
  - FALL [None]
  - HAEMATOMA [None]
  - HEPATIC FAILURE [None]
  - MUSCULAR WEAKNESS [None]
  - PSYCHOMOTOR RETARDATION [None]
  - RHABDOMYOLYSIS [None]
